FAERS Safety Report 24128094 (Version 5)
Quarter: 2025Q1

REPORT INFORMATION
  Report Type: Report from Study
  Country: CA (occurrence: CA)
  Receive Date: 20240723
  Receipt Date: 20250129
  Transmission Date: 20250409
  Serious: Yes (Hospitalization, Other)
  Sender: JOHNSON AND JOHNSON
  Company Number: CA-JNJFOC-20240732572

PATIENT
  Age: 32 Year
  Sex: Male

DRUGS (1)
  1. REMICADE [Suspect]
     Active Substance: INFLIXIMAB
     Indication: Ankylosing spondylitis
     Dosage: EXPIRY DATE- 31-DEC-2026
     Route: 041
     Dates: start: 20160725

REACTIONS (8)
  - Anal abscess [Unknown]
  - Bacteraemia [Unknown]
  - Fistula [Recovered/Resolved]
  - Off label use [Unknown]
  - Road traffic accident [Recovered/Resolved]
  - Skin abrasion [Recovered/Resolved]
  - Influenza [Not Recovered/Not Resolved]
  - Laryngitis [Recovered/Resolved]

NARRATIVE: CASE EVENT DATE: 20160725
